FAERS Safety Report 5464391-5 (Version None)
Quarter: 2007Q3

REPORT INFORMATION
  Report Type: 
  Country: None (occurrence: None)
  Receive Date: 20070921
  Receipt Date: 20070910
  Transmission Date: 20080115
  Serious: Yes (Other)
  Sender: FDA-Public Use
  Company Number: US-GENENTECH-245470

PATIENT
  Sex: Male
  Weight: 78 kg

DRUGS (11)
  1. BEVACIZUMAB [Suspect]
     Indication: NON-SMALL CELL LUNG CANCER
     Dosage: 1261 UNK, Q21D
     Route: 042
     Dates: start: 20070620, end: 20070710
  2. SUNITINIB MALATE [Suspect]
     Indication: NON-SMALL CELL LUNG CANCER
     Dosage: 12.5 MG, QDX14D/21DC
     Route: 048
     Dates: start: 20070620, end: 20070724
  3. CARBOPLATIN [Suspect]
     Indication: NON-SMALL CELL LUNG CANCER
     Dosage: 669 MG, UNK
     Dates: start: 20070620, end: 20070731
  4. CARBOPLATIN [Suspect]
     Dosage: 521 MG, UNK
     Dates: start: 20070710
  5. PACLITAXEL [Suspect]
     Indication: NON-SMALL CELL LUNG CANCER
     Dosage: 420 MG, UNK
     Dates: start: 20070620
  6. PACLITAXEL [Suspect]
     Dosage: 304 MG, UNK
     Dates: start: 20070710, end: 20070731
  7. PLAVIX [Concomitant]
     Indication: PROPHYLAXIS
     Dates: start: 20030101
  8. ASPIRIN [Concomitant]
     Indication: PROPHYLAXIS
     Dates: start: 20030101
  9. LIPITOR [Concomitant]
     Indication: BLOOD CHOLESTEROL INCREASED
     Dates: start: 20030101
  10. TOPROL-XL [Concomitant]
     Indication: PROPHYLAXIS
     Dates: start: 20030101
  11. LORTAB [Concomitant]
     Indication: DRUG USE FOR UNKNOWN INDICATION

REACTIONS (1)
  - AORTIC ANEURYSM [None]
